FAERS Safety Report 7956154-3 (Version None)
Quarter: 2011Q4

REPORT INFORMATION
  Report Type: 
  Country: None (occurrence: None)
  Receive Date: 20111205
  Receipt Date: 20111123
  Transmission Date: 20120403
  Serious: Yes (Hospitalization, Other)
  Sender: FDA-Public Use
  Company Number: US-ELI_LILLY_AND_COMPANY-US201111008605

PATIENT
  Sex: Male

DRUGS (5)
  1. HUMALOG [Suspect]
     Indication: TYPE 2 DIABETES MELLITUS
     Dosage: UNK, TID
     Route: 065
  2. LANTUS [Concomitant]
     Indication: TYPE 2 DIABETES MELLITUS
     Dosage: 90 U, EACH EVENING
  3. HUMALOG [Suspect]
     Dosage: UNK, TID
     Route: 065
  4. HYDROCODONE [Concomitant]
     Indication: BACK PAIN
  5. METFORMIN HCL [Concomitant]
     Indication: TYPE 2 DIABETES MELLITUS
     Dosage: 250 MG, QD

REACTIONS (15)
  - HYPOKINESIA [None]
  - SPINAL COLUMN INJURY [None]
  - DRUG DOSE OMISSION [None]
  - MYOCARDIAL INFARCTION [None]
  - WHITE BLOOD CELL COUNT INCREASED [None]
  - DEVICE BREAKAGE [None]
  - CARDIAC DISORDER [None]
  - BACK PAIN [None]
  - HYPERSENSITIVITY [None]
  - BLOOD GLUCOSE INCREASED [None]
  - CORONARY ARTERY OCCLUSION [None]
  - DYSPNOEA [None]
  - ROAD TRAFFIC ACCIDENT [None]
  - MALAISE [None]
  - INAPPROPRIATE SCHEDULE OF DRUG ADMINISTRATION [None]
